FAERS Safety Report 9783896 (Version 1)
Quarter: 2013Q4

REPORT INFORMATION
  Report Type: Spontaneous
  Country: US (occurrence: US)
  Receive Date: 20131226
  Receipt Date: 20131226
  Transmission Date: 20140711
  Serious: No
  Sender: FDA-Public Use
  Company Number: US-PFIZER INC-2013364287

PATIENT
  Sex: Male

DRUGS (2)
  1. ADVIL [Suspect]
     Indication: PAIN
     Dosage: 200 MG, UNK
  2. ADVIL PM [Suspect]
     Dosage: 200 MG, UNK

REACTIONS (3)
  - Extra dose administered [Unknown]
  - Inappropriate schedule of drug administration [Unknown]
  - Drug ineffective [Unknown]
